FAERS Safety Report 9787328 (Version 1)
Quarter: 2013Q4

REPORT INFORMATION
  Report Type: Spontaneous
  Country: DE (occurrence: DE)
  Receive Date: 20131230
  Receipt Date: 20131230
  Transmission Date: 20140711
  Serious: Yes (Hospitalization)
  Sender: FDA-Public Use
  Company Number: DE-BIOGENIDEC-2013BI122793

PATIENT
  Age: 33 Year
  Sex: Male
  Weight: 98 kg

DRUGS (1)
  1. AVONEX [Suspect]
     Indication: MULTIPLE SCLEROSIS
     Route: 030
     Dates: start: 20120801

REACTIONS (8)
  - Breast abscess [Recovered/Resolved]
  - Pilonidal cyst [Recovered/Resolved with Sequelae]
  - Joint abscess [Recovered/Resolved with Sequelae]
  - Multiple sclerosis [Unknown]
  - Pyrexia [Recovered/Resolved]
  - Chills [Recovered/Resolved]
  - Pain in extremity [Recovered/Resolved]
  - Multiple sclerosis relapse [Recovered/Resolved]
